FAERS Safety Report 20537846 (Version 1)
Quarter: 2022Q1

REPORT INFORMATION
  Report Type: Spontaneous
  Country: US (occurrence: None)
  Receive Date: 20220301
  Receipt Date: 20220301
  Transmission Date: 20220423
  Serious: Yes (Death)
  Sender: FDA-Public Use
  Company Number: None

PATIENT
  Age: 64 Year
  Sex: Male

DRUGS (1)
  1. CAPECITABINE [Suspect]
     Active Substance: CAPECITABINE
     Dosage: 2000MG AM, 2500MG BID ORAL
     Route: 048
     Dates: start: 20210928

REACTIONS (1)
  - Death [None]

NARRATIVE: CASE EVENT DATE: 20220301
